FAERS Safety Report 19704305 (Version 1)
Quarter: 2021Q3

REPORT INFORMATION
  Report Type: Spontaneous
  Country: US (occurrence: US)
  Receive Date: 20210815
  Receipt Date: 20210815
  Transmission Date: 20211014
  Serious: No
  Sender: FDA-Public Use
  Company Number: None

PATIENT
  Sex: Female

DRUGS (1)
  1. METOPROLOL. [Suspect]
     Active Substance: METOPROLOL
     Indication: TACHYCARDIA
     Route: 048
     Dates: start: 20210728, end: 20210810

REACTIONS (6)
  - Aphonia [None]
  - Drug ineffective [None]
  - Bronchitis [None]
  - Cough [None]
  - Pulmonary congestion [None]
  - Laryngitis [None]

NARRATIVE: CASE EVENT DATE: 20210728
